FAERS Safety Report 16280372 (Version 1)
Quarter: 2019Q2

REPORT INFORMATION
  Report Type: Spontaneous
  Country: CL (occurrence: CL)
  Receive Date: 20190507
  Receipt Date: 20190507
  Transmission Date: 20190711
  Serious: Yes (Other)
  Sender: FDA-Public Use
  Company Number: CL-VIIV HEALTHCARE LIMITED-CL2019GSK080025

PATIENT
  Sex: Male

DRUGS (1)
  1. DOLUTEGRAVIR [Suspect]
     Active Substance: DOLUTEGRAVIR
     Indication: HIV INFECTION
     Dosage: UNK

REACTIONS (7)
  - Skin lesion [Unknown]
  - Urticaria [Unknown]
  - Angioedema [Unknown]
  - Prurigo [Unknown]
  - Respiratory distress [Unknown]
  - Drug hypersensitivity [Unknown]
  - Laryngeal obstruction [Unknown]
